FAERS Safety Report 23326026 (Version 5)
Quarter: 2024Q1

REPORT INFORMATION
  Report Type: Spontaneous
  Country: US (occurrence: US)
  Receive Date: 20231221
  Receipt Date: 20240215
  Transmission Date: 20240410
  Serious: No
  Sender: FDA-Public Use
  Company Number: US-PFIZER INC-202300435011

PATIENT
  Age: 14 Year
  Sex: Male
  Weight: 66 kg

DRUGS (4)
  1. GENOTROPIN [Suspect]
     Active Substance: SOMATROPIN
     Indication: Growth hormone deficiency
     Dosage: UNK, 1X/DAY
     Dates: start: 20230812
  2. HYDROCORTISONE [Concomitant]
     Active Substance: HYDROCORTISONE
     Dosage: 5 MG, 1X/DAY
  3. LETROZOLE [Concomitant]
     Active Substance: LETROZOLE
     Dosage: 2.5 ONCE PER DAY
  4. LEXIPRON [Concomitant]
     Dosage: 5, THE LOWEST DOSE

REACTIONS (2)
  - Drug dose omission by device [Unknown]
  - Device breakage [Unknown]
